FAERS Safety Report 10617131 (Version 2)
Quarter: 2019Q4

REPORT INFORMATION
  Report Type: Spontaneous
  Country: DE (occurrence: DE)
  Receive Date: 20141201
  Receipt Date: 20191119
  Transmission Date: 20200122
  Serious: Yes (Other)
  Sender: FDA-Public Use
  Company Number: DE-MYLANLABS-2014M1012054

PATIENT
  Sex: Female
  Weight: 97 kg

DRUGS (15)
  1. DEKRISTOL [Concomitant]
     Active Substance: CHOLECALCIFEROL
     Indication: VITAMIN SUPPLEMENTATION
     Dosage: 20000 [I.E./WK ]/ SINCE 2007
     Route: 048
     Dates: start: 20130702, end: 20131217
  2. ADALAT [Concomitant]
     Active Substance: NIFEDIPINE
     Indication: TOCOLYSIS
     Dosage: UNK
     Route: 042
  3. AZATHIOPRINE. [Suspect]
     Active Substance: AZATHIOPRINE
     Dosage: 100 [MG/D (BIS 50) ]/ SINCE 2012. DOSAGE WAS INCREASED DURING PREGNANCY FROM 50 TO 100 MG/D
     Route: 048
     Dates: start: 20130702, end: 20140114
  4. AMLODIPINE [Concomitant]
     Active Substance: AMLODIPINE BESYLATE
     Indication: RENAL HYPERTENSION
     Dosage: 7.5 [MG/D (2.5-0-5) ]
     Route: 048
  5. BETAMETHASONE. [Concomitant]
     Active Substance: BETAMETHASONE
     Indication: MATERNAL THERAPY TO ENHANCE FOETAL LUNG MATURITY
     Dosage: IN WEEK 25+3, 25+4 AND AGAIN IN WEEK 28+0
     Route: 065
  6. DOPEGYT [Suspect]
     Active Substance: METHYLDOPA
     Indication: RENAL HYPERTENSION
     Dosage: 500 [MG/D (2 X 250) ]/ SINCE 2010
     Route: 048
     Dates: start: 20130702, end: 20140114
  7. THYROXIN [Concomitant]
     Active Substance: LEVOTHYROXINE
     Indication: HYPOTHYROIDISM
     Dosage: 25 [?G/D (BIS 12.5)
     Route: 048
     Dates: start: 20130702, end: 20140114
  8. DEKRISTOL [Concomitant]
     Active Substance: CHOLECALCIFEROL
     Indication: VITAMIN SUPPLEMENTATION
  9. AMPICILLIN [Concomitant]
     Active Substance: AMPICILLIN
     Indication: ANTIBIOTIC PROPHYLAXIS
     Dosage: UNK
     Route: 065
     Dates: start: 20140114, end: 20140114
  10. BELOC-ZOK COMP [Concomitant]
     Active Substance: HYDROCHLOROTHIAZIDE\METOPROLOL SUCCINATE
     Indication: RENAL HYPERTENSION
     Dosage: 70.75 [MG/D (47.5-0-23.75) ]/ SINCE WHEN?. PROBABLY THERAPY STARTED EARLIER.
     Route: 048
     Dates: start: 20140114, end: 20140114
  11. PROGRAF [Suspect]
     Active Substance: TACROLIMUS
     Indication: PROPHYLAXIS AGAINST TRANSPLANT REJECTION
     Dosage: 5.5 [MG/D (3-0-2.5 MG/D) ]/ SINCE 2007
     Route: 048
     Dates: start: 20130702, end: 20140114
  12. METOPROLOL. [Suspect]
     Active Substance: METOPROLOL
     Indication: RENAL HYPERTENSION
     Dosage: 142.5 [MG/D (95-0-47.5) ]/ SINCE 2012. THERAPY PROBABLY ONGOING OR CHANGED TO BELOC ZOK MITE
     Route: 048
     Dates: start: 20130702, end: 20131217
  13. AZATHIOPRINE. [Suspect]
     Active Substance: AZATHIOPRINE
     Indication: PROPHYLAXIS AGAINST TRANSPLANT REJECTION
     Dosage: 50 MILLIGRAM, QD
     Route: 048
     Dates: start: 2012, end: 201307
  14. FOLIC ACID. [Concomitant]
     Active Substance: FOLIC ACID
     Indication: PROPHYLAXIS OF NEURAL TUBE DEFECT
     Dosage: 0.6 MG, ONCE DAILY (QD)
     Route: 048
     Dates: start: 20130702, end: 20131217
  15. PARTUSISTEN [Concomitant]
     Active Substance: FENOTEROL
     Indication: TOCOLYSIS
     Dosage: UNK
     Route: 042
     Dates: start: 20140114, end: 20140114

REACTIONS (8)
  - Polyhydramnios [Recovered/Resolved]
  - Maternal exposure during pregnancy [Recovered/Resolved]
  - Hydrops foetalis [Unknown]
  - Premature labour [Unknown]
  - Cervical incompetence [Unknown]
  - Premature rupture of membranes [Unknown]
  - Uterine malposition [Unknown]
  - Premature delivery [Unknown]

NARRATIVE: CASE EVENT DATE: 20130702
